FAERS Safety Report 4435217-3 (Version None)
Quarter: 2004Q3

REPORT INFORMATION
  Report Type: 
  Country: None (occurrence: None)
  Receive Date: 20040826
  Receipt Date: 20040817
  Transmission Date: 20050211
  Serious: Yes (Other)
  Sender: FDA-Public Use
  Company Number: HQWYE078814JUL04

PATIENT
  Sex: Female

DRUGS (1)
  1. GEMTUZUMAB OZOGAMICIN (GEMTUZUMAB OZOGAMICIN, INJECTION) [Suspect]
     Indication: ACUTE MYELOID LEUKAEMIA
     Dosage: RANGED FROM 1.8 TO 9 MG/M ^2 TWICE IN 14 DAYS INTRAVENOUS
     Route: 042

REACTIONS (2)
  - STEM CELL TRANSPLANT [None]
  - VENOOCCLUSIVE LIVER DISEASE [None]
